FAERS Safety Report 7243564-5 (Version None)
Quarter: 2011Q1

REPORT INFORMATION
  Report Type: 
  Country: None (occurrence: None)
  Receive Date: 20110125
  Receipt Date: 20110111
  Transmission Date: 20110831
  Serious: Yes (Other)
  Sender: FDA-Public Use
  Company Number: PHHY2011GR03976

PATIENT
  Age: 38 Year
  Sex: Female

DRUGS (3)
  1. EXJADE [Suspect]
     Indication: THALASSAEMIA BETA
     Dosage: 18.9 MG/KG, DAY
     Dates: start: 20060801
  2. EXJADE [Suspect]
     Dosage: 23.6 MG/KG, QD
     Dates: start: 20061101
  3. HORMONES [Concomitant]

REACTIONS (6)
  - WEIGHT INCREASED [None]
  - RASH [None]
  - NORMAL NEWBORN [None]
  - CONSTIPATION [None]
  - DRUG EXPOSURE DURING PREGNANCY [None]
  - GESTATIONAL DIABETES [None]
